FAERS Safety Report 7187522-8 (Version None)
Quarter: 2010Q4

REPORT INFORMATION
  Report Type: 
  Country: None (occurrence: None)
  Receive Date: 20101222
  Receipt Date: 20100629
  Transmission Date: 20110411
  Serious: No
  Sender: FDA-Public Use
  Company Number: US-AMGEN-KDL421154

PATIENT

DRUGS (12)
  1. ENBREL [Suspect]
     Indication: PRODUCT USED FOR UNKNOWN INDICATION
     Dosage: 50 MG, QWK
     Route: 058
  2. LOSARTAN POTASSIUM [Concomitant]
     Dosage: 50 MG, UNK
  3. VENLAFAXINE HCL [Concomitant]
     Dosage: 37.5 MG, UNK
  4. HYDROXYCHLOROQUINE SULFATE [Concomitant]
     Dosage: 200 MG, UNK
  5. PREDNISONE [Concomitant]
     Dosage: 5 MG, UNK
  6. SIMVASTATIN [Concomitant]
     Dosage: 20 MG, UNK
  7. GLIBENCLAMIDE [Concomitant]
     Dosage: 5 MG, UNK
  8. METOPROLOL [Concomitant]
     Dosage: 25 MG, UNK
  9. ESOMEPRAZOLE MAGNESIUM [Concomitant]
     Dosage: 40 MG, UNK
  10. TAMSULOSIN HCL [Concomitant]
     Dosage: .4 MG, UNK
  11. SULFASALAZINE [Concomitant]
     Dosage: 500 MG, UNK
  12. ACETAMINOPHEN AND OXYCODONE HCL [Concomitant]
     Dosage: 325 MG, UNK

REACTIONS (3)
  - HEADACHE [None]
  - SECRETION DISCHARGE [None]
  - SINUS HEADACHE [None]
